FAERS Safety Report 10745754 (Version 1)
Quarter: 2015Q1

REPORT INFORMATION
  Report Type: Spontaneous
  Country: US (occurrence: None)
  Receive Date: 20150114
  Receipt Date: 20150114
  Transmission Date: 20150721
  Serious: Yes (Other)
  Sender: FDA-Public Use
  Company Number: US-JNJFOC-20130802809

PATIENT
  Age: 54 Year
  Sex: Female
  Weight: 57.15 kg

DRUGS (2)
  1. MENS ROGAINE UNSCENTED FORMULA [Suspect]
     Active Substance: MINOXIDIL
     Indication: HAIR GROWTH ABNORMAL
     Route: 061
     Dates: start: 201306, end: 201308
  2. NIOXIN [Concomitant]
     Active Substance: PYRITHIONE ZINC

REACTIONS (4)
  - Chest pain [None]
  - Product quality issue [None]
  - Pruritus [None]
  - Off label use [None]

NARRATIVE: CASE EVENT DATE: 201306
